FAERS Safety Report 8205070-0 (Version None)
Quarter: 2012Q1

REPORT INFORMATION
  Report Type: 
  Country: None (occurrence: None)
  Receive Date: 20120313
  Receipt Date: 20120306
  Transmission Date: 20120608
  Serious: Yes (Other)
  Sender: FDA-Public Use
  Company Number: JP-SANOFI-AVENTIS-2012SA016088

PATIENT
  Sex: Male

DRUGS (1)
  1. LASIX [Suspect]
     Dosage: STRENGTH 20 MG
     Route: 065

REACTIONS (1)
  - LIVER INJURY [None]
